FAERS Safety Report 10423703 (Version 2)
Quarter: 2014Q3

REPORT INFORMATION
  Report Type: Report from Study
  Country: DE (occurrence: DE)
  Receive Date: 20140902
  Receipt Date: 20140911
  Transmission Date: 20150326
  Serious: Yes (Hospitalization)
  Sender: FDA-Public Use
  Company Number: PHHO2014DE011536

PATIENT

DRUGS (11)
  1. DECORTIN H [Suspect]
     Active Substance: PREDNISOLONE
     Dosage: 250 MG/DAY
     Route: 042
     Dates: start: 20140821
  2. CELLCEPT [Suspect]
     Active Substance: MYCOPHENOLATE MOFETIL\MYCOPHENOLATE MOFETIL HYDROCHLORIDE
     Dosage: 1000 MG/DAY
     Route: 048
     Dates: start: 20140708, end: 20140813
  3. LERCANIDIPINE [Concomitant]
     Active Substance: LERCANIDIPINE
     Indication: HYPERTENSION
     Dosage: 10 MG/DAY
     Route: 048
     Dates: start: 20140506
  4. DECORTIN H [Suspect]
     Active Substance: PREDNISOLONE
     Indication: RENAL TRANSPLANT
     Dosage: 7.5 MG/DAY
     Route: 048
     Dates: start: 20140608, end: 20140813
  5. DECORTIN H [Suspect]
     Active Substance: PREDNISOLONE
     Dosage: 7.5 MG/DAY
     Dates: start: 20140826
  6. TACROLIMUS. [Suspect]
     Active Substance: TACROLIMUS
     Indication: RENAL TRANSPLANT
     Dosage: UNK
  7. DECORTIN H [Suspect]
     Active Substance: PREDNISOLONE
     Dosage: 100 MG/DAY
     Route: 048
     Dates: start: 20140823
  8. DECORTIN H [Suspect]
     Active Substance: PREDNISOLONE
     Dosage: 50 MG/DAY
     Route: 048
     Dates: start: 20140825
  9. COTRIM D.S. [Concomitant]
     Active Substance: SULFAMETHOXAZOLE\TRIMETHOPRIM
     Indication: PROPHYLAXIS
     Dosage: 411.4 MG/DAY
     Route: 048
     Dates: start: 20140409
  10. CELLCEPT [Suspect]
     Active Substance: MYCOPHENOLATE MOFETIL\MYCOPHENOLATE MOFETIL HYDROCHLORIDE
     Indication: RENAL TRANSPLANT
     Dosage: 2000 MG, QD
     Route: 048
     Dates: start: 20140409
  11. METOPROLOL [Concomitant]
     Active Substance: METOPROLOL
     Indication: HYPERTENSION
     Dosage: 190 MG/DAY
     Route: 048

REACTIONS (2)
  - Polyomavirus-associated nephropathy [Recovering/Resolving]
  - Blood creatinine increased [Recovering/Resolving]

NARRATIVE: CASE EVENT DATE: 20140814
